FAERS Safety Report 7068737-6 (Version None)
Quarter: 2010Q4

REPORT INFORMATION
  Report Type: 
  Country: None (occurrence: None)
  Receive Date: 20101027
  Receipt Date: 20101027
  Transmission Date: 20110411
  Serious: Yes (Other)
  Sender: FDA-Public Use
  Company Number: None

PATIENT
  Age: 3 Year
  Sex: Female
  Weight: 15.5 kg

DRUGS (3)
  1. PENTASA [Suspect]
     Indication: CROHN'S DISEASE
     Dosage: 500MG TWICE A DAY TWICE A DAY PO
     Route: 048
     Dates: start: 20101011, end: 20101026
  2. PENTASA [Suspect]
     Indication: INFLAMMATORY BOWEL DISEASE
     Dosage: 500MG TWICE A DAY TWICE A DAY PO
     Route: 048
     Dates: start: 20101011, end: 20101026
  3. MESALAMINE [Suspect]
     Dosage: 2 1/2 ML THREE TIMES A DAY THREE TIMES A DAY PO
     Route: 048
     Dates: start: 20100830, end: 20101010

REACTIONS (1)
  - RASH GENERALISED [None]
